FAERS Safety Report 7075032-8 (Version None)
Quarter: 2010Q4

REPORT INFORMATION
  Report Type: 
  Country: None (occurrence: None)
  Receive Date: 20101029
  Receipt Date: 20100119
  Transmission Date: 20110411
  Serious: Yes (Hospitalization)
  Sender: FDA-Public Use
  Company Number: US-WYE-H12464509

PATIENT
  Age: 45 Year
  Sex: Female
  Weight: 63.56 kg

DRUGS (5)
  1. ADVIL PM [Suspect]
     Indication: INSOMNIA
     Dosage: 1 CAPLET AS NEEDED
     Route: 048
     Dates: start: 20090901, end: 20091117
  2. VITAMIN E [Concomitant]
     Dosage: UNKNOWN
     Route: 048
  3. ASCORBIC ACID [Concomitant]
     Dosage: UNKNOWN
     Route: 048
  4. MULTI-VITAMINS [Concomitant]
     Dosage: UNKNOWN
     Route: 048
  5. VITAMIN B COMPLEX CAP [Concomitant]
     Dosage: UNKNOWN
     Route: 048

REACTIONS (1)
  - GASTRITIS [None]
